FAERS Safety Report 15939467 (Version 1)
Quarter: 2019Q1

REPORT INFORMATION
  Report Type: Spontaneous
  Country: BR (occurrence: BR)
  Receive Date: 20190208
  Receipt Date: 20190208
  Transmission Date: 20190417
  Serious: Yes (Other)
  Sender: FDA-Public Use
  Company Number: BR-SAKK-2019SA026481AA

PATIENT
  Sex: Female
  Weight: 78 kg

DRUGS (7)
  1. CLEXANE [Suspect]
     Active Substance: ENOXAPARIN SODIUM
     Indication: HYPERCOAGULATION
     Dosage: 1 DF, QD (1 APPLICATION DAILY)
     Route: 058
     Dates: start: 20180710
  2. CALCIUM + MAGNESIUM [Concomitant]
     Indication: GESTATIONAL TROPHOBLASTIC DETACHMENT
     Dosage: UNK, BID
     Route: 048
  3. VITAMIN D [Concomitant]
     Active Substance: CHOLECALCIFEROL
     Indication: VITAMIN SUPPLEMENTATION
     Dosage: 1 DF, QD
     Route: 048
  4. UTROGESTAN [Concomitant]
     Active Substance: PROGESTERONE
     Indication: GESTATIONAL TROPHOBLASTIC DETACHMENT
     Dosage: 1 DF, QD
     Route: 065
  5. NATELE [Concomitant]
     Active Substance: VITAMINS
     Indication: HYPOVITAMINOSIS
     Dosage: UNK, QD
     Route: 048
  6. AAS PROTECT [Suspect]
     Active Substance: ASPIRIN
     Indication: HYPERTENSION
     Dosage: ONCE DAILY
     Route: 048
  7. OMEGA 3 [FISH OIL] [Concomitant]
     Indication: VITAMIN SUPPLEMENTATION
     Dosage: 3 DF, QD
     Route: 048

REACTIONS (3)
  - Exposure during pregnancy [Unknown]
  - Gestational trophoblastic detachment [Recovered/Resolved]
  - Product use issue [Unknown]
